FAERS Safety Report 4944928-2 (Version None)
Quarter: 2006Q1

REPORT INFORMATION
  Report Type: 
  Country: None (occurrence: None)
  Receive Date: 20060315
  Receipt Date: 20060306
  Transmission Date: 20060701
  Serious: Yes (Other)
  Sender: FDA-Public Use
  Company Number: GB-MERCK-0603GBR00023

PATIENT
  Age: 69 Year
  Sex: Male

DRUGS (9)
  1. ZETIA [Suspect]
     Indication: BLOOD CHOLESTEROL INCREASED
     Route: 048
     Dates: start: 20060202, end: 20060215
  2. ZOCOR [Suspect]
     Indication: BLOOD CHOLESTEROL INCREASED
     Route: 048
     Dates: start: 20051101
  3. WARFARIN [Suspect]
     Indication: AORTIC VALVE REPLACEMENT
     Route: 065
  4. PAROXETINE [Concomitant]
     Indication: DEPRESSION
     Route: 048
     Dates: start: 20040101
  5. FUROSEMIDE [Concomitant]
     Indication: CARDIAC DISORDER
     Route: 048
     Dates: start: 20030101
  6. RAMIPRIL [Concomitant]
     Indication: CARDIAC DISORDER
     Route: 048
     Dates: start: 20030101
  7. AMLODIPINE BESYLATE [Concomitant]
     Route: 048
  8. LOPERAMIDE HYDROCHLORIDE [Concomitant]
     Route: 065
  9. CODEINE [Concomitant]
     Route: 065

REACTIONS (2)
  - DRUG INTERACTION [None]
  - INTERNATIONAL NORMALISED RATIO INCREASED [None]
